FAERS Safety Report 5926181-6 (Version None)
Quarter: 2008Q4

REPORT INFORMATION
  Report Type: 
  Country: None (occurrence: None)
  Receive Date: 20081017
  Receipt Date: 20080929
  Transmission Date: 20090506
  Serious: Yes (Hospitalization, Other)
  Sender: FDA-Public Use
  Company Number: 035072

PATIENT
  Age: 10 Month
  Sex: Female

DRUGS (2)
  1. TRAMADOL HYDROCHLORIDE [Suspect]
     Dosage: ORAL
     Route: 048
  2. HYDROXYZINE [Concomitant]

REACTIONS (11)
  - ACCIDENTAL DRUG INTAKE BY CHILD [None]
  - ACIDOSIS [None]
  - ASPARTATE AMINOTRANSFERASE INCREASED [None]
  - DIARRHOEA [None]
  - GLASGOW COMA SCALE ABNORMAL [None]
  - GRAND MAL CONVULSION [None]
  - HAEMATOCRIT DECREASED [None]
  - IRRITABILITY [None]
  - RESPIRATORY DISORDER [None]
  - SINUSITIS [None]
  - TONIC CONVULSION [None]
